FAERS Safety Report 11349255 (Version 2)
Quarter: 2015Q3

REPORT INFORMATION
  Report Type: Spontaneous
  Country: JP (occurrence: JP)
  Receive Date: 20150807
  Receipt Date: 20150905
  Transmission Date: 20151125
  Serious: Yes (Hospitalization)
  Sender: FDA-Public Use
  Company Number: JP-MERCK-1507JPN008469

PATIENT
  Age: 51 Year
  Sex: Female

DRUGS (5)
  1. TELMISARTAN/AMLODIPINE BESYLATE [Concomitant]
     Indication: HYPERTENSION
     Dosage: 1 DF, QD
     Route: 048
     Dates: start: 20140118
  2. FAMOTIDINE. [Concomitant]
     Active Substance: FAMOTIDINE
     Indication: GASTRIC ULCER
     Dosage: 10 MG, QD
     Route: 048
     Dates: start: 20141008
  3. REFLEX [Suspect]
     Active Substance: MIRTAZAPINE
     Dosage: 15 MG, 1 TABLET PER DAY
     Route: 048
     Dates: start: 20150516
  4. ATORVASTATIN CALCIUM HYDRATE [Concomitant]
     Active Substance: ATORVASTATIN CALCIUM
     Indication: HYPERLIPIDAEMIA
     Dosage: 10 MG, QD
     Route: 048
     Dates: start: 20141216
  5. REFLEX [Suspect]
     Active Substance: MIRTAZAPINE
     Indication: INSOMNIA
     Dosage: 150 MG, ONCE
     Route: 048
     Dates: start: 20150716, end: 20150716

REACTIONS (2)
  - Intentional overdose [Recovered/Resolved]
  - Somnolence [Recovered/Resolved]

NARRATIVE: CASE EVENT DATE: 20150716
